FAERS Safety Report 4649741-1 (Version None)
Quarter: 2005Q2

REPORT INFORMATION
  Report Type: 
  Country: None (occurrence: None)
  Receive Date: 20050428
  Receipt Date: 20050428
  Transmission Date: 20051028
  Serious: Yes (Hospitalization)
  Sender: FDA-Public Use
  Company Number: None

PATIENT
  Sex: Male
  Weight: 117 kg

DRUGS (2)
  1. ZANAFLEX [Suspect]
     Indication: NEUROPATHY
     Dates: start: 20050102, end: 20050103
  2. ZANAFLEX [Suspect]
     Indication: SPINAL OSTEOARTHRITIS
     Dates: start: 20050102, end: 20050103

REACTIONS (1)
  - SWELLING FACE [None]
